FAERS Safety Report 23568633 (Version 1)
Quarter: 2024Q1

REPORT INFORMATION
  Report Type: Spontaneous
  Country: CN (occurrence: CN)
  Receive Date: 20240227
  Receipt Date: 20240227
  Transmission Date: 20240410
  Serious: Yes (Hospitalization, Other)
  Sender: FDA-Public Use
  Company Number: CN-HALEON-CNCH2024APC009510

PATIENT

DRUGS (1)
  1. IBUPROFEN [Suspect]
     Active Substance: IBUPROFEN
     Indication: Pyrexia
     Dosage: 1 DF, BID
     Route: 048
     Dates: start: 20240203, end: 20240203

REACTIONS (4)
  - Rash erythematous [Unknown]
  - Blood pressure decreased [Unknown]
  - Hypotension [Unknown]
  - Pruritus [Unknown]

NARRATIVE: CASE EVENT DATE: 20240203
